FAERS Safety Report 25624933 (Version 2)
Quarter: 2025Q3

REPORT INFORMATION
  Report Type: Report from Study
  Country: GB (occurrence: GB)
  Receive Date: 20250731
  Receipt Date: 20250819
  Transmission Date: 20251021
  Serious: Yes (Other)
  Sender: NOVARTIS
  Company Number: GB-002147023-NVSC2024GB244429

PATIENT
  Sex: Female

DRUGS (2)
  1. KESIMPTA [Suspect]
     Active Substance: OFATUMUMAB
     Indication: Relapsing-remitting multiple sclerosis
     Dosage: 20 MG, QW
     Route: 058
     Dates: start: 20241223
  2. KESIMPTA [Suspect]
     Active Substance: OFATUMUMAB
     Indication: Multiple sclerosis
     Dosage: 20 MG, QMO
     Route: 058

REACTIONS (12)
  - Multiple sclerosis [Not Recovered/Not Resolved]
  - Feeling of body temperature change [Recovered/Resolved]
  - Pain [Recovered/Resolved]
  - Neuralgia [Recovering/Resolving]
  - Condition aggravated [Recovering/Resolving]
  - Headache [Unknown]
  - Arthralgia [Unknown]
  - Electric shock sensation [Unknown]
  - Visual impairment [Unknown]
  - Eye movement disorder [Unknown]
  - Mydriasis [Unknown]
  - Sciatica [Unknown]

NARRATIVE: CASE EVENT DATE: 20241223
